FAERS Safety Report 4620234-0 (Version None)
Quarter: 2005Q1

REPORT INFORMATION
  Report Type: 
  Country: None (occurrence: None)
  Receive Date: 20050321
  Receipt Date: 20050321
  Transmission Date: 20050727
  Serious: Yes (Other)
  Sender: FDA-Public Use
  Company Number: None

PATIENT
  Age: 63 Year
  Sex: Female
  Weight: 67.1324 kg

DRUGS (3)
  1. ACYCLOVIR [Suspect]
     Indication: HERPES SIMPLEX
     Dosage: QD  PO  ORAL
     Route: 048
     Dates: start: 20050209, end: 20050409
  2. HYDROCHLOROTHIAZIDE [Concomitant]
  3. ZOVIRAX [Concomitant]

REACTIONS (1)
  - RASH [None]
